FAERS Safety Report 16944627 (Version 1)
Quarter: 2019Q4

REPORT INFORMATION
  Report Type: Spontaneous
  Country: GB (occurrence: GB)
  Receive Date: 20191022
  Receipt Date: 20191022
  Transmission Date: 20200122
  Serious: Yes (Life-Threatening, Hospitalization, Other)
  Sender: FDA-Public Use
  Company Number: GB-TEVA-2010A-08820

PATIENT
  Age: 64 Year
  Sex: Female
  Weight: 48 kg

DRUGS (8)
  1. CARBOPLATIN (UNKNOWN) [Suspect]
     Active Substance: CARBOPLATIN
     Indication: PRODUCT USED FOR UNKNOWN INDICATION
     Dosage: 430 MG
     Route: 065
  2. DEXAMETHASONE. [Suspect]
     Active Substance: DEXAMETHASONE
     Indication: PRODUCT USED FOR UNKNOWN INDICATION
     Dosage: UNIT DOSE 8 MG
     Route: 042
  3. BRUFEN                             /00109201/ [Concomitant]
     Active Substance: IBUPROFEN
  4. GEMCITABINE. [Suspect]
     Active Substance: GEMCITABINE
     Indication: NON-SMALL CELL LUNG CANCER METASTATIC
     Dosage: UNIT DOSE 1250 MG/M2
     Route: 042
     Dates: start: 20100219, end: 20100219
  5. PARACETAMOL [Concomitant]
     Active Substance: ACETAMINOPHEN
  6. ONDANSETRON HYDROCHLORIDE (UNKNOWN) [Suspect]
     Active Substance: ONDANSETRON HYDROCHLORIDE
     Indication: PRODUCT USED FOR UNKNOWN INDICATION
     Dosage: 8 MILLIGRAM
     Route: 042
     Dates: start: 20100219
  7. TRAMADOL. [Concomitant]
     Active Substance: TRAMADOL
  8. METOCLOPRAMIDE. [Suspect]
     Active Substance: METOCLOPRAMIDE
     Indication: PRODUCT USED FOR UNKNOWN INDICATION
     Dosage: AS NECESSARY
     Route: 042

REACTIONS (2)
  - Malaise [Recovering/Resolving]
  - Hepatitis [Recovering/Resolving]

NARRATIVE: CASE EVENT DATE: 20100228
